FAERS Safety Report 10602312 (Version 3)
Quarter: 2015Q2

REPORT INFORMATION
  Report Type: Spontaneous
  Country: US (occurrence: US)
  Receive Date: 20141124
  Receipt Date: 20150519
  Transmission Date: 20150821
  Serious: Yes (Hospitalization, Other)
  Sender: FDA-Public Use
  Company Number: US-PFIZER INC-2014317783

PATIENT
  Age: 54 Year
  Sex: Male
  Weight: 109 kg

DRUGS (4)
  1. LYRICA [Suspect]
     Active Substance: PREGABALIN
     Indication: BURNING SENSATION
     Dosage: 75 MG, 2X/DAY
     Route: 048
     Dates: start: 201410, end: 201410
  2. TRAMADOL [Concomitant]
     Active Substance: TRAMADOL
     Indication: PAIN
     Dosage: 50 MG, EIGHT TIMES A DAY
     Route: 048
  3. PERCOCET [Concomitant]
     Active Substance: ACETAMINOPHEN\OXYCODONE HYDROCHLORIDE
     Indication: PAIN
     Dosage: 10 MG, 3X/DAY
     Route: 048
  4. LISINOPRIL. [Concomitant]
     Active Substance: LISINOPRIL
     Indication: BLOOD PRESSURE ABNORMAL
     Dosage: 10/12.5 ONCE DAILY

REACTIONS (16)
  - Insomnia [Not Recovered/Not Resolved]
  - Malaise [Unknown]
  - Feeling abnormal [Not Recovered/Not Resolved]
  - Muscle twitching [Not Recovered/Not Resolved]
  - Vomiting [Unknown]
  - Restlessness [Not Recovered/Not Resolved]
  - Dysstasia [Not Recovered/Not Resolved]
  - Syncope [Not Recovered/Not Resolved]
  - Hallucination [Not Recovered/Not Resolved]
  - Disorientation [Not Recovered/Not Resolved]
  - Dyskinesia [Not Recovered/Not Resolved]
  - Cardiomegaly [Not Recovered/Not Resolved]
  - Diarrhoea [Recovered/Resolved]
  - Dysuria [Not Recovered/Not Resolved]
  - Nausea [Not Recovered/Not Resolved]
  - Asthenia [Recovered/Resolved]

NARRATIVE: CASE EVENT DATE: 201410
